FAERS Safety Report 6469910-8 (Version None)
Quarter: 2009Q4

REPORT INFORMATION
  Report Type: 
  Country: None (occurrence: None)
  Receive Date: 20091203
  Receipt Date: 20071030
  Transmission Date: 20100525
  Serious: Yes (Death)
  Sender: FDA-Public Use
  Company Number: DE-ELI_LILLY_AND_COMPANY-DE200710007243

PATIENT
  Age: 68 Year
  Sex: Male

DRUGS (8)
  1. CIALIS [Suspect]
     Indication: ERECTILE DYSFUNCTION
     Dosage: 20 MG, UNKNOWN
     Dates: start: 20071001
  2. AMLODIPINE [Concomitant]
     Dosage: 5 MG, UNKNOWN
  3. ATACAND [Concomitant]
     Dosage: 16 MG, UNKNOWN
  4. HYDROCHLOROTHIAZIDE [Concomitant]
     Dosage: 25 MG, UNKNOWN
  5. ASPIRIN [Concomitant]
     Dosage: 100 MG, UNKNOWN
  6. INSULIN [Concomitant]
  7. MEDIABET [Concomitant]
     Dosage: 500 MG, UNKNOWN
  8. SIMVAHEXAL [Concomitant]

REACTIONS (1)
  - SUDDEN DEATH [None]
